FAERS Safety Report 18768632 (Version 1)
Quarter: 2021Q1

REPORT INFORMATION
  Report Type: Spontaneous
  Country: US (occurrence: US)
  Receive Date: 20210121
  Receipt Date: 20210121
  Transmission Date: 20210419
  Serious: Yes (Other)
  Sender: FDA-Public Use
  Company Number: None

PATIENT
  Age: 78 Year
  Sex: Male
  Weight: 78.47 kg

DRUGS (2)
  1. RITUXAN [Suspect]
     Active Substance: RITUXIMAB
     Indication: LYMPHOMA
     Dates: start: 20210119, end: 20210119
  2. RITUXAN [Concomitant]
     Active Substance: RITUXIMAB
     Dates: start: 20210119, end: 20210119

REACTIONS (2)
  - Head discomfort [None]
  - Feeling abnormal [None]

NARRATIVE: CASE EVENT DATE: 20210119
